FAERS Safety Report 17709615 (Version 3)
Quarter: 2020Q3

REPORT INFORMATION
  Report Type: Report from Study
  Country: None (occurrence: US)
  Receive Date: 20200427
  Receipt Date: 20200922
  Transmission Date: 20201102
  Serious: Yes (Death, Hospitalization, Other)
  Sender: FDA-Public Use
  Company Number: US-ABBVIE-20K-163-3379357-00

PATIENT
  Age: 79 Year
  Sex: Male
  Weight: 119.86 kg

DRUGS (2)
  1. CREON [Suspect]
     Active Substance: PANCRELIPASE AMYLASE\PANCRELIPASE LIPASE\PANCRELIPASE PROTEASE
     Indication: PANCREATITIS CHRONIC
     Dosage: 5 CAPSULES EACH MEAL
     Route: 048
     Dates: start: 2017
  2. CREON [Suspect]
     Active Substance: PANCRELIPASE AMYLASE\PANCRELIPASE LIPASE\PANCRELIPASE PROTEASE
     Dosage: 1 EACH UP TO TWO SNACKS A DAY
     Route: 048
     Dates: end: 202004

REACTIONS (10)
  - Colitis [Fatal]
  - Hepatic cirrhosis [Fatal]
  - Pneumonia aspiration [Fatal]
  - Post procedural infection [Unknown]
  - Hepatic cancer [Fatal]
  - Skin lesion removal [Recovered/Resolved]
  - Toe amputation [Unknown]
  - Pulmonary fibrosis [Fatal]
  - Hypoxia [Unknown]
  - Fall [Unknown]

NARRATIVE: CASE EVENT DATE: 20170527
